FAERS Safety Report 9152516 (Version 1)
Quarter: 2013Q1

REPORT INFORMATION
  Report Type: Spontaneous
  Country: US (occurrence: US)
  Receive Date: 20130308
  Receipt Date: 20130308
  Transmission Date: 20140127
  Serious: No
  Sender: FDA-Public Use
  Company Number: US-TEVA-389879USA

PATIENT
  Age: 39 None
  Sex: Female
  Weight: 77.18 kg

DRUGS (2)
  1. PLAN B ONE-STEP [Suspect]
     Indication: POST COITAL CONTRACEPTION
     Dosage: 1.5 MILLIGRAM DAILY;
     Route: 048
     Dates: start: 201301, end: 201301
  2. PLAN B ONE-STEP [Suspect]
     Dosage: 1.5 MILLIGRAM DAILY;
     Route: 048
     Dates: start: 20130227, end: 20130227

REACTIONS (3)
  - Menstruation delayed [Not Recovered/Not Resolved]
  - Menstruation irregular [Recovered/Resolved]
  - Pelvic pain [Recovered/Resolved]
